FAERS Safety Report 18337318 (Version 1)
Quarter: 2020Q4

REPORT INFORMATION
  Report Type: Spontaneous
  Country: IT (occurrence: IT)
  Receive Date: 20201002
  Receipt Date: 20201002
  Transmission Date: 20210113
  Serious: Yes (Disabling, Other)
  Sender: FDA-Public Use
  Company Number: IT-TEVA-2020-IT-1835253

PATIENT
  Age: 61 Year
  Sex: Male

DRUGS (4)
  1. CYCLOSPORIN [Concomitant]
     Active Substance: CYCLOSPORINE
     Indication: NEPHROTIC SYNDROME
  2. PREDNISONE. [Suspect]
     Active Substance: PREDNISONE
     Indication: GLOMERULONEPHRITIS MEMBRANOUS
  3. CYCLOSPORIN [Concomitant]
     Active Substance: CYCLOSPORINE
     Indication: GLOMERULONEPHRITIS MEMBRANOUS
     Dosage: 50 MILLIGRAM DAILY;
     Route: 048
  4. PREDNISONE. [Suspect]
     Active Substance: PREDNISONE
     Indication: NEPHROTIC SYNDROME
     Dosage: 12.5 MILLIGRAM DAILY;
     Route: 048

REACTIONS (2)
  - Chorioretinopathy [Recovered/Resolved]
  - Condition aggravated [Recovered/Resolved]
